FAERS Safety Report 4900944-8 (Version None)
Quarter: 2006Q1

REPORT INFORMATION
  Report Type: 
  Country: None (occurrence: None)
  Receive Date: 20060203
  Receipt Date: 20060109
  Transmission Date: 20060701
  Serious: Yes (Hospitalization, Disabling)
  Sender: FDA-Public Use
  Company Number: US-MERCK-0601USA01015

PATIENT
  Age: 49 Year
  Sex: Male
  Weight: 73 kg

DRUGS (4)
  1. VIOXX [Suspect]
     Indication: ARTHRITIS
     Route: 048
     Dates: start: 20040101, end: 20040301
  2. INSULIN [Concomitant]
     Route: 058
  3. PROTONIX [Concomitant]
     Route: 048
  4. TOPROL-XL [Concomitant]
     Route: 048

REACTIONS (3)
  - CARDIOVASCULAR DISORDER [None]
  - CEREBROVASCULAR ACCIDENT [None]
  - MYOCARDIAL INFARCTION [None]
